FAERS Safety Report 7060251-7 (Version None)
Quarter: 2010Q4

REPORT INFORMATION
  Report Type: 
  Country: None (occurrence: None)
  Receive Date: 20101025
  Receipt Date: 20101018
  Transmission Date: 20110411
  Serious: Yes (Hospitalization, Disabling, Other)
  Sender: FDA-Public Use
  Company Number: JP-BRISTOL-MYERS SQUIBB COMPANY-15347354

PATIENT
  Age: 78 Year
  Sex: Female

DRUGS (6)
  1. IRBESARTAN [Suspect]
     Indication: HYPERTENSION
     Dosage: REDUCED TO 25MG FROM 22JUN2010
     Route: 048
     Dates: start: 20100819
  2. ZYLORIC [Concomitant]
  3. PRIMOBOLAN [Concomitant]
  4. RIZE [Concomitant]
  5. MYSLEE [Concomitant]
     Dates: end: 20100511
  6. TAKEPRON [Concomitant]

REACTIONS (3)
  - ATRIAL FIBRILLATION [None]
  - CARDIAC FAILURE [None]
  - CEREBELLAR INFARCTION [None]
